FAERS Safety Report 17746923 (Version 1)
Quarter: 2020Q2

REPORT INFORMATION
  Report Type: Other
  Country: TR (occurrence: TR)
  Receive Date: 20200505
  Receipt Date: 20200505
  Transmission Date: 20200714
  Serious: Yes (Life-Threatening, Hospitalization)
  Sender: FDA-Public Use
  Company Number: TR-NOSTRUM LABORATORIES, INC.-2083507

PATIENT
  Age: 34 Year
  Sex: Female

DRUGS (1)
  1. VALPROIC ACID SOLUTION 250 MG/5 ML [Suspect]
     Active Substance: VALPROIC ACID
     Indication: INTENTIONAL OVERDOSE
     Route: 048

REACTIONS (5)
  - Hypocalcaemia [Recovered/Resolved]
  - Loss of consciousness [Recovered/Resolved]
  - Intentional overdose [Recovered/Resolved]
  - Respiratory depression [Recovered/Resolved]
  - Hypokalaemia [Recovered/Resolved]
